FAERS Safety Report 17318892 (Version 2)
Quarter: 2020Q1

REPORT INFORMATION
  Report Type: Spontaneous
  Country: BR (occurrence: BR)
  Receive Date: 20200124
  Receipt Date: 20200204
  Transmission Date: 20200409
  Serious: Yes (Hospitalization)
  Sender: FDA-Public Use
  Company Number: BR-BIOMARINAP-BR-2020-128052

PATIENT
  Age: 19 Year
  Sex: Male
  Weight: 25.3 kg

DRUGS (3)
  1. NAGLAZYME [Suspect]
     Active Substance: GALSULFASE
     Indication: MUCOPOLYSACCHARIDOSIS VI
     Dosage: UNK, QW
     Route: 042
  2. CARVEDILOL. [Concomitant]
     Active Substance: CARVEDILOL
     Indication: PRODUCT USED FOR UNKNOWN INDICATION
     Dosage: 3.125 MILLIGRAM, BID
  3. UNOPROST [DOXAZOSIN MESILATE] [Concomitant]
     Active Substance: DOXAZOSIN MESYLATE
     Indication: NEUROGENIC BLADDER
     Dosage: 2 MILLIGRAM, BID

REACTIONS (7)
  - Respiratory distress [Recovered/Resolved]
  - Immunodeficiency [Recovered/Resolved]
  - Insomnia [Recovered/Resolved]
  - Tachypnoea [Recovered/Resolved]
  - Tachycardia [Recovered/Resolved]
  - Pyrexia [Recovered/Resolved]
  - Cough [Recovered/Resolved]

NARRATIVE: CASE EVENT DATE: 201912
